FAERS Safety Report 24303470 (Version 1)
Quarter: 2024Q3

REPORT INFORMATION
  Report Type: Spontaneous
  Country: ES (occurrence: ES)
  Receive Date: 20240910
  Receipt Date: 20240910
  Transmission Date: 20241017
  Serious: Yes (Other)
  Sender: PURDUE
  Company Number: ES-TEVA-VS-3226277

PATIENT
  Age: 36 Year
  Sex: Female
  Weight: 83.3 kg

DRUGS (16)
  1. HYDROMORPHONE HYDROCHLORIDE [Interacting]
     Active Substance: HYDROMORPHONE HYDROCHLORIDE
     Indication: Product used for unknown indication
     Dosage: 8 MG 56 TABLETS/2 COMP/24 H/0 - 0 - 0 - 2
     Route: 048
     Dates: end: 202103
  2. HYDROMORPHONE HYDROCHLORIDE [Interacting]
     Active Substance: HYDROMORPHONE HYDROCHLORIDE
     Indication: Product used for unknown indication
     Dosage: 8 MG 56 TABLETS/2 COMP/24 H/0 - 0 - 0 - 2
     Route: 048
     Dates: end: 202103
  3. FENTANYL [Interacting]
     Active Substance: FENTANYL\FENTANYL CITRATE
     Indication: Product used for unknown indication
     Dosage: 200 MCG 30 TABLETS SUCK/1 TABLET/24 H
     Route: 048
  4. FENTANYL [Interacting]
     Active Substance: FENTANYL\FENTANYL CITRATE
     Dosage: 133 MCG 30 COMP SUBLIN/1 TABLET/24 H
     Route: 048
  5. EBASTINE [Interacting]
     Active Substance: EBASTINE
     Indication: Product used for unknown indication
     Dosage: 20 TABLETS 1 TABLET/24 H
     Route: 048
  6. ZOLPIDEM [Interacting]
     Active Substance: ZOLPIDEM TARTRATE
     Indication: Product used for unknown indication
     Dosage: 10 MG 30 TABLETS/1 C/24 H 0 - 0 - 0 - 1
     Route: 048
  7. TERBUTALINE [Interacting]
     Active Substance: TERBUTALINE
     Indication: Product used for unknown indication
     Dosage: TURBUHALER 500 MCG/INH /1 INH/24 H
     Route: 065
  8. PREGABALIN [Interacting]
     Active Substance: PREGABALIN
     Indication: Product used for unknown indication
     Dosage: 75 MG 56 TABLETS/2 C/24 H/0 - 0 - 2 - 0
     Route: 048
  9. FLUTICASONE [Concomitant]
     Active Substance: FLUTICASONE
     Indication: Product used for unknown indication
     Dosage: 27.5 MCG/PULV/2 PCS/24 H
     Route: 065
  10. LEVOTHYROXINE [Concomitant]
     Active Substance: LEVOTHYROXINE\LEVOTHYROXINE SODIUM
     Indication: Product used for unknown indication
     Dosage: 75 MCG 100 TABLETS/1 TABLET/24 H/1 - 0 - 0 - 0
     Route: 048
  11. EPINEPHRINE [Concomitant]
     Active Substance: EPINEPHRINE
     Indication: Product used for unknown indication
     Dosage: 300 MCG INJ
     Route: 065
  12. CALCIFEDIOL [Concomitant]
     Active Substance: CALCIFEDIOL
     Indication: Product used for unknown indication
     Dosage: 0.266 MG 10 CAPS/1 CAP/30 DAYS
     Route: 048
  13. THIAMINE [Concomitant]
     Active Substance: THIAMINE
     Indication: Product used for unknown indication
     Dosage: 300 MG 20 TABLETS/1 COMP/7 DAYS/1 - 0 - 0 - 0
     Route: 048
  14. CYANOCOBALAMIN [Concomitant]
     Active Substance: CYANOCOBALAMIN
     Indication: Product used for unknown indication
     Dosage: 1000 MCG 8 AMP/1 AMP/0 DAYS
     Route: 065
  15. ELETRIPTAN [Concomitant]
     Active Substance: ELETRIPTAN
     Indication: Product used for unknown indication
     Dosage: 40 MG 4 TABLETS /1 TABLET/24 H
     Route: 048
  16. ACETAMINOPHEN [Concomitant]
     Active Substance: ACETAMINOPHEN
     Indication: Product used for unknown indication
     Dosage: 1 G 40 COMP/1 TABLET/12 H
     Route: 048

REACTIONS (3)
  - Drug interaction [Unknown]
  - Cardiotoxicity [Unknown]
  - Sedation [Unknown]
